FAERS Safety Report 16476801 (Version 2)
Quarter: 2019Q3

REPORT INFORMATION
  Report Type: Spontaneous
  Country: JP (occurrence: JP)
  Receive Date: 20190626
  Receipt Date: 20190704
  Transmission Date: 20191004
  Serious: Yes (Other)
  Sender: FDA-Public Use
  Company Number: JP-GLAXOSMITHKLINE-JP2019JPN112340

PATIENT
  Age: 75 Year
  Sex: Female

DRUGS (5)
  1. LIPITOR TABLETS [Concomitant]
     Indication: DYSLIPIDAEMIA
     Dosage: 5 MG, QD
     Dates: start: 201605
  2. RELVAR ELLIPTA [Suspect]
     Active Substance: FLUTICASONE FUROATE\VILANTEROL TRIFENATATE
     Indication: ASTHMA
     Dosage: 100 ?G, QD
     Route: 055
     Dates: start: 20190408, end: 20190518
  3. KIPRES TABLETS [Concomitant]
     Indication: ASTHMA
     Dosage: UNK
     Dates: start: 201605
  4. IPD [Concomitant]
     Active Substance: SUPLATAST TOSILATE
     Indication: ASTHMA
     Dosage: 200 MG, BID
     Dates: start: 201605
  5. KAKKONTO [Concomitant]
     Active Substance: HERBALS
     Dosage: UNK

REACTIONS (1)
  - Hypokalaemia [Recovered/Resolved]

NARRATIVE: CASE EVENT DATE: 20190517
